FAERS Safety Report 16356589 (Version 1)
Quarter: 2019Q2

REPORT INFORMATION
  Report Type: Report from Study
  Country: DE (occurrence: DE)
  Receive Date: 20190527
  Receipt Date: 20190527
  Transmission Date: 20190711
  Serious: Yes (Hospitalization, Other)
  Sender: FDA-Public Use
  Company Number: DE-BRISTOL-MYERS SQUIBB COMPANY-BMS-2018-120466

PATIENT
  Age: 84 Year
  Sex: Male

DRUGS (7)
  1. CANDESARTAN. [Concomitant]
     Active Substance: CANDESARTAN
     Indication: PROPHYLAXIS
     Dosage: UNK
     Route: 065
     Dates: start: 20190417
  2. TORASEMID [Concomitant]
     Active Substance: TORSEMIDE
     Indication: PROPHYLAXIS
     Dosage: 10 MILLIGRAM
     Route: 065
     Dates: start: 20190418, end: 20190424
  3. FUROSEMIDE. [Concomitant]
     Active Substance: FUROSEMIDE
     Indication: PROPHYLAXIS
     Dosage: 20 MILLIGRAM
     Route: 042
     Dates: start: 20190418, end: 20190418
  4. NIVOLUMAB [Suspect]
     Active Substance: NIVOLUMAB
     Indication: RENAL CELL CARCINOMA
     Dosage: 3 MG/KG, Q2WK
     Route: 042
     Dates: start: 20181105, end: 20190108
  5. FRESUBIN                           /07459901/ [Concomitant]
     Active Substance: CARBOHYDRATES\FATTY ACIDS\MINERALS\PROTEIN\VITAMINS
     Indication: PROPHYLAXIS
     Dosage: UNK
     Route: 065
     Dates: start: 20190127
  6. NIVOLUMAB [Suspect]
     Active Substance: NIVOLUMAB
     Indication: PRODUCT USED FOR UNKNOWN INDICATION
     Dosage: 240 MILLIGRAM
     Route: 042
     Dates: start: 20181105, end: 20190402
  7. METOCLOPRAMIDE. [Concomitant]
     Active Substance: METOCLOPRAMIDE
     Indication: PROPHYLAXIS
     Dosage: 10 MG, UNK
     Route: 065
     Dates: start: 20181227

REACTIONS (10)
  - Diarrhoea [Recovered/Resolved]
  - Decreased appetite [Recovered/Resolved]
  - Dyspnoea [Unknown]
  - Malignant neoplasm progression [Not Recovered/Not Resolved]
  - Nausea [Unknown]
  - Lymphadenopathy [Unknown]
  - Hypertensive crisis [Recovered/Resolved]
  - Fatigue [Not Recovered/Not Resolved]
  - Dizziness [Recovered/Resolved]
  - Bronchiectasis [Unknown]

NARRATIVE: CASE EVENT DATE: 20181127
